FAERS Safety Report 6448024-7 (Version None)
Quarter: 2009Q4

REPORT INFORMATION
  Report Type: 
  Country: None (occurrence: None)
  Receive Date: 20091120
  Receipt Date: 20091113
  Transmission Date: 20100525
  Serious: Yes (Other)
  Sender: FDA-Public Use
  Company Number: DE-AMGEN-UK360107

PATIENT
  Sex: Male
  Weight: 98 kg

DRUGS (11)
  1. ARANESP [Suspect]
     Indication: RENAL FAILURE CHRONIC
     Route: 058
     Dates: start: 20050201, end: 20090601
  2. ALLOPURINOL [Concomitant]
     Route: 065
  3. CARVEDILOL [Concomitant]
     Route: 065
  4. TORASEMIDE [Concomitant]
     Route: 065
  5. CANDESARTAN CILEXETIL [Concomitant]
     Route: 065
  6. PERINDOPRIL [Concomitant]
     Route: 065
  7. RAMIPRIL [Concomitant]
     Route: 065
  8. SIMAVASTATIN [Concomitant]
     Route: 065
  9. ACETYLSALICYLIC ACID [Concomitant]
     Route: 065
  10. MAGNESIUM [Concomitant]
     Route: 065
  11. COLECALCIFEROL [Concomitant]

REACTIONS (4)
  - HAEMOGLOBIN DECREASED [None]
  - PSORIASIS [None]
  - RASH [None]
  - T-CELL LYMPHOMA [None]
